FAERS Safety Report 13928457 (Version 2)
Quarter: 2017Q3

REPORT INFORMATION
  Report Type: Report from Study
  Country: None (occurrence: NL)
  Receive Date: 20170901
  Receipt Date: 20170905
  Transmission Date: 20171127
  Serious: Yes (Death)
  Sender: FDA-Public Use
  Company Number: NL-ABBVIE-17K-114-2086756-00

PATIENT
  Age: 76 Year
  Sex: Male

DRUGS (1)
  1. DUODOPA [Suspect]
     Active Substance: CARBIDOPA\LEVODOPA
     Indication: PARKINSON^S DISEASE
     Dosage: MD 6.1, CD 3.4, ED 1.5
     Route: 050
     Dates: start: 20111229

REACTIONS (3)
  - Aspiration [Fatal]
  - Choking [Fatal]
  - Hypoxia [Fatal]

NARRATIVE: CASE EVENT DATE: 20170824
